FAERS Safety Report 5993311-X (Version None)
Quarter: 2008Q4

REPORT INFORMATION
  Report Type: 
  Country: None (occurrence: None)
  Receive Date: 20081209
  Receipt Date: 20071114
  Transmission Date: 20090506
  Serious: No
  Sender: FDA-Public Use
  Company Number: 07H-163-0313470-00

PATIENT
  Age: 15 Year
  Sex: Male
  Weight: 59.8748 kg

DRUGS (2)
  1. DEMEROL [Suspect]
     Indication: CHILLS
     Dosage: 12.5 MG, TWICE, INTRAVENOUS
     Route: 042
     Dates: start: 20071108, end: 20071108
  2. DEMEROL [Suspect]
     Indication: PAIN
     Dosage: 12.5 MG, TWICE, INTRAVENOUS
     Route: 042
     Dates: start: 20071108, end: 20071108

REACTIONS (1)
  - URTICARIA [None]
